FAERS Safety Report 10446440 (Version 1)
Quarter: 2014Q3

REPORT INFORMATION
  Report Type: Other
  Country: US (occurrence: US)
  Receive Date: 20140911
  Receipt Date: 20140911
  Transmission Date: 20150326
  Serious: No
  Sender: FDA-Public Use
  Company Number: US-LUPIN PHARMACEUTICALS INC.-2014-01365

PATIENT
  Sex: Male

DRUGS (2)
  1. SIMVASTATIN TABLETS USP 80 MG [Suspect]
     Active Substance: SIMVASTATIN
     Route: 065
  2. SIMVASTATIN TABLETS USP 80 MG [Suspect]
     Active Substance: SIMVASTATIN
     Indication: PRODUCT USED FOR UNKNOWN INDICATION
     Route: 065

REACTIONS (2)
  - Wrong technique in drug usage process [Unknown]
  - Blood pressure increased [Unknown]
